FAERS Safety Report 8003783-7 (Version None)
Quarter: 2011Q4

REPORT INFORMATION
  Report Type: 
  Country: None (occurrence: None)
  Receive Date: 20111222
  Receipt Date: 20111219
  Transmission Date: 20120403
  Serious: No
  Sender: FDA-Public Use
  Company Number: US-BAYER-2011-122445

PATIENT
  Age: 20 Year

DRUGS (4)
  1. IBUPROFEN (ADVIL) [Concomitant]
  2. EXTRA STRENGTH TYLENOL [Concomitant]
  3. ASPIRIN [Suspect]
  4. ALEVE (CAPLET) [Suspect]
     Indication: PAIN

REACTIONS (2)
  - PAIN [None]
  - SOMNOLENCE [None]
